FAERS Safety Report 6908985-6 (Version None)
Quarter: 2010Q3

REPORT INFORMATION
  Report Type: 
  Country: None (occurrence: None)
  Receive Date: 20100805
  Receipt Date: 20100728
  Transmission Date: 20110219
  Serious: Yes (Death, Congenital Anomaly)
  Sender: FDA-Public Use
  Company Number: GB-MYLANLABS-2010S1013093

PATIENT
  Sex: Female
  Weight: 3.41 kg

DRUGS (4)
  1. DARUNAVIR [Suspect]
     Route: 064
     Dates: start: 20090310
  2. RALTEGRAVIR [Suspect]
     Route: 064
     Dates: start: 20090319
  3. RITONAVIR [Suspect]
     Route: 064
     Dates: start: 20090319
  4. ZIDOVUDINE [Suspect]
     Route: 064
     Dates: start: 20090318

REACTIONS (5)
  - CARDIAC MURMUR [None]
  - CONGENITAL HEART VALVE DISORDER [None]
  - DRUG EXPOSURE DURING PREGNANCY [None]
  - SUDDEN INFANT DEATH SYNDROME [None]
  - VENTRICULAR HYPERTROPHY [None]
